FAERS Safety Report 10094652 (Version 1)
Quarter: 2014Q2

REPORT INFORMATION
  Report Type: Spontaneous
  Country: CN (occurrence: CN)
  Receive Date: 20140422
  Receipt Date: 20140422
  Transmission Date: 20141212
  Serious: Yes (Other)
  Sender: FDA-Public Use
  Company Number: CN-SA-2014SA047717

PATIENT
  Age: 47 Year
  Sex: Male

DRUGS (1)
  1. APROVEL [Suspect]
     Indication: PROPHYLAXIS
     Route: 048
     Dates: start: 20120510, end: 20120514

REACTIONS (1)
  - Urinary retention [Recovered/Resolved]
